FAERS Safety Report 15324849 (Version 1)
Quarter: 2018Q3

REPORT INFORMATION
  Report Type: Spontaneous
  Country: US (occurrence: US)
  Receive Date: 20180822
  Receipt Date: 20180822
  Transmission Date: 20181010
  Serious: Yes (Hospitalization)
  Sender: FDA-Public Use
  Company Number: None

PATIENT
  Age: 66 Year
  Sex: Male

DRUGS (1)
  1. LONSURF [Suspect]
     Active Substance: TIPIRACIL HYDROCHLORIDE\TRIFLURIDINE
     Indication: RECTAL CANCER
     Dosage: ?          OTHER FREQUENCY:BID DAYS 1?5, 8?12;?
     Route: 048
     Dates: start: 20180619

REACTIONS (4)
  - White blood cell count decreased [None]
  - Pneumonia [None]
  - Pyrexia [None]
  - Cough [None]

NARRATIVE: CASE EVENT DATE: 20180807
